FAERS Safety Report 22187600 (Version 5)
Quarter: 2023Q4

REPORT INFORMATION
  Report Type: Spontaneous
  Country: US (occurrence: US)
  Receive Date: 20230407
  Receipt Date: 20231204
  Transmission Date: 20240110
  Serious: Yes (Hospitalization)
  Sender: FDA-Public Use
  Company Number: US-KARYOPHARM-2023KPT000939

PATIENT

DRUGS (1)
  1. XPOVIO [Suspect]
     Active Substance: SELINEXOR
     Indication: Plasma cell myeloma
     Dosage: 40 MG, WEEKLY
     Route: 048
     Dates: start: 20230120, end: 20231129

REACTIONS (10)
  - Renal haemorrhage [Unknown]
  - Urinary tract infection [Unknown]
  - Rib fracture [Unknown]
  - Fall [Not Recovered/Not Resolved]
  - Plasma cell myeloma [Unknown]
  - Platelet count decreased [Unknown]
  - Dizziness [Unknown]
  - Asthenia [Not Recovered/Not Resolved]
  - Mental status changes [Unknown]
  - Constipation [Unknown]

NARRATIVE: CASE EVENT DATE: 20230101
